FAERS Safety Report 16756542 (Version 1)
Quarter: 2019Q3

REPORT INFORMATION
  Report Type: Spontaneous
  Country: DE (occurrence: DE)
  Receive Date: 20190829
  Receipt Date: 20190829
  Transmission Date: 20191005
  Serious: Yes (Life-Threatening, Other)
  Sender: FDA-Public Use
  Company Number: DE-MYLANLABS-2019M1081330

PATIENT
  Age: 81 Year
  Sex: Male
  Weight: 65 kg

DRUGS (1)
  1. DURAFENAT? [Suspect]
     Active Substance: FENOFIBRATE
     Indication: BLOOD TRIGLYCERIDES INCREASED
     Dosage: 0-0-1
     Route: 048
     Dates: start: 2004

REACTIONS (3)
  - Muscle atrophy [Recovering/Resolving]
  - Dysarthria [Recovering/Resolving]
  - Motor neurone disease [Recovering/Resolving]

NARRATIVE: CASE EVENT DATE: 20181001
